FAERS Safety Report 12171863 (Version 2)
Quarter: 2016Q1

REPORT INFORMATION
  Report Type: Spontaneous
  Country: US (occurrence: US)
  Receive Date: 20160311
  Receipt Date: 20160314
  Transmission Date: 20160526
  Serious: Yes (Other)
  Sender: FDA-Public Use
  Company Number: US-TEVA-631858USA

PATIENT
  Age: 33 Year
  Sex: Female

DRUGS (1)
  1. ZECUITY [Suspect]
     Active Substance: SUMATRIPTAN SUCCINATE
     Dosage: 3-3.5 HR
     Route: 062
     Dates: start: 20160127, end: 20160127

REACTIONS (7)
  - Application site burn [Not Recovered/Not Resolved]
  - Application site warmth [Not Recovered/Not Resolved]
  - Application site pain [Not Recovered/Not Resolved]
  - Application site erythema [Recovered/Resolved]
  - Application site pruritus [Not Recovered/Not Resolved]
  - Application site scar [Not Recovered/Not Resolved]
  - Application site urticaria [Not Recovered/Not Resolved]

NARRATIVE: CASE EVENT DATE: 20160129
